FAERS Safety Report 24916768 (Version 1)
Quarter: 2025Q1

REPORT INFORMATION
  Report Type: Spontaneous
  Country: DE (occurrence: DE)
  Receive Date: 20250203
  Receipt Date: 20250203
  Transmission Date: 20250408
  Serious: No
  Sender: NOVARTIS
  Company Number: DE-SANDOZ-SDZ2024DE067444

PATIENT
  Age: 6 Decade
  Sex: Female

DRUGS (1)
  1. TERBINAFINE HYDROCHLORIDE [Suspect]
     Active Substance: TERBINAFINE HYDROCHLORIDE
     Indication: Product used for unknown indication
     Dosage: 2 DF, QD (PRESCRIBED ONE TABLET PER DAY FOR A PERIOD OF 3 DAYS (PRESCRIBED TOTAL DURATION: 10 DAYS).
     Route: 065

REACTIONS (1)
  - Extra dose administered [Unknown]
